FAERS Safety Report 5621588-9 (Version None)
Quarter: 2008Q1

REPORT INFORMATION
  Report Type: 
  Country: None (occurrence: None)
  Receive Date: 20080206
  Receipt Date: 20080202
  Transmission Date: 20080703
  Serious: Yes (Death)
  Sender: FDA-Public Use
  Company Number: 2008SP000163

PATIENT
  Sex: Male

DRUGS (14)
  1. BROVANA [Suspect]
     Indication: CHRONIC OBSTRUCTIVE PULMONARY DISEASE
     Dosage: 15 UG/2M; BID; INHALATION
     Route: 055
     Dates: start: 20071207, end: 20071201
  2. XOPENEX [Concomitant]
  3. .. [Concomitant]
  4. FUROSEMIDE [Concomitant]
  5. COREG [Concomitant]
  6. SPIRIVA [Concomitant]
  7. IMDUR [Concomitant]
  8. HUMULIN R [Concomitant]
  9. HUMALOG [Concomitant]
  10. LIPITOR [Concomitant]
  11. CLOPIDOGREL [Concomitant]
  12. ADVAIR DISKUS 100/50 [Concomitant]
  13. AMLODIPINE [Concomitant]
  14. LEVOTHYROXINE SODIUM [Concomitant]

REACTIONS (1)
  - DEATH [None]
